FAERS Safety Report 6625992-1 (Version None)
Quarter: 2010Q1

REPORT INFORMATION
  Report Type: 
  Country: None (occurrence: None)
  Receive Date: 20100310
  Receipt Date: 20100303
  Transmission Date: 20100710
  Serious: Yes (Other)
  Sender: FDA-Public Use
  Company Number: GB-JNJCH-2010005691

PATIENT
  Sex: Female

DRUGS (3)
  1. NICORETTE INVISI 25MG [Suspect]
     Indication: DRUG USE FOR UNKNOWN INDICATION
     Route: 062
     Dates: start: 20100101, end: 20100201
  2. NICORETTE INVISI 15MG PATCH [Suspect]
     Indication: DRUG USE FOR UNKNOWN INDICATION
     Route: 062
  3. NICORETTE [Suspect]
     Indication: DRUG USE FOR UNKNOWN INDICATION
     Dosage: TEXT:MAXIMUM OF 3 CARTIDGES PER DAY
     Route: 055

REACTIONS (5)
  - DEPENDENCE [None]
  - DYSGEUSIA [None]
  - NASOPHARYNGITIS [None]
  - OVERDOSE [None]
  - TOOTH DISORDER [None]
